FAERS Safety Report 9768157 (Version 2)
Quarter: 2013Q4

REPORT INFORMATION
  Report Type: Spontaneous
  Country: IT (occurrence: IT)
  Receive Date: 20131217
  Receipt Date: 20131217
  Transmission Date: 20140711
  Serious: Yes (Life-Threatening)
  Sender: FDA-Public Use
  Company Number: IT-GLAXOSMITHKLINE-B0665206A

PATIENT
  Age: 2 Year
  Sex: Female

DRUGS (8)
  1. ALKERAN [Suspect]
     Indication: CHEMOTHERAPY
     Dosage: 50MG PER DAY
     Route: 042
     Dates: start: 20100609, end: 20100609
  2. BUSULFAN [Suspect]
     Indication: CHEMOTHERAPY
     Dosage: 52MG PER DAY
     Route: 042
     Dates: start: 20100605, end: 20100608
  3. TEGRETOL [Concomitant]
     Dosage: 100MG PER DAY
     Dates: start: 20100605, end: 20100608
  4. URSODEOXYCHOLIC ACID [Concomitant]
     Dosage: 150MG PER DAY
     Dates: start: 20100605, end: 20100608
  5. ZOFRAN [Concomitant]
     Dosage: 6MG PER DAY
  6. SOLDESAM [Concomitant]
     Dosage: 4MG PER DAY
     Dates: start: 20100605, end: 20100608
  7. INTERLEUKIN [Concomitant]
  8. GRANULOCYTE-MACROPHAGE COLONY-STIMULATING FACTOR [Concomitant]

REACTIONS (1)
  - Venoocclusive disease [Recovering/Resolving]
